FAERS Safety Report 7381639-0 (Version None)
Quarter: 2011Q1

REPORT INFORMATION
  Report Type: 
  Country: None (occurrence: None)
  Receive Date: 20110329
  Receipt Date: 20110303
  Transmission Date: 20110831
  Serious: No
  Sender: FDA-Public Use
  Company Number: US-B.I. PHARMACEUTICALS,INC./RIDGEFIELD-2011-BP-06265BP

PATIENT
  Age: 94 Year
  Sex: Female

DRUGS (10)
  1. COLACE [Concomitant]
     Indication: INTESTINAL FUNCTIONAL DISORDER
     Route: 048
     Dates: start: 20100101
  2. TRAMADOL [Concomitant]
     Indication: PAIN
     Route: 048
     Dates: start: 20080101
  3. LEVOTHYROXINE SODIUM [Concomitant]
     Indication: THYROID DISORDER
     Route: 048
     Dates: start: 20080101
  4. LISINOPRIL [Concomitant]
     Indication: HYPERTENSION
     Route: 048
     Dates: start: 20110201
  5. OMEPRAZOLE [Concomitant]
     Indication: GASTROOESOPHAGEAL REFLUX DISEASE
     Route: 048
     Dates: start: 20080101
  6. REMERON [Concomitant]
     Indication: DEPRESSION
     Route: 048
     Dates: start: 19960101
  7. CELEXA [Concomitant]
     Indication: DEPRESSION
     Route: 048
     Dates: start: 19960101
  8. PRADAXA [Suspect]
     Indication: ATRIAL FIBRILLATION
     Dosage: 300 MG
     Route: 048
     Dates: start: 20110304
  9. XANAX [Concomitant]
     Indication: ANXIETY
     Route: 048
     Dates: start: 19960101
  10. SOTALOL HCL [Concomitant]
     Indication: CARDIAC DISORDER
     Route: 048
     Dates: start: 20110201

REACTIONS (3)
  - NAUSEA [None]
  - DECREASED APPETITE [None]
  - ABDOMINAL DISCOMFORT [None]
